FAERS Safety Report 4659330-0 (Version None)
Quarter: 2005Q2

REPORT INFORMATION
  Report Type: 
  Country: None (occurrence: None)
  Receive Date: 20050510
  Receipt Date: 20050428
  Transmission Date: 20051028
  Serious: Yes (Death)
  Sender: FDA-Public Use
  Company Number: 05P-087-0295294-00

PATIENT
  Age: 18 Month
  Sex: Female
  Weight: 8.7 kg

DRUGS (13)
  1. ULTANE [Suspect]
     Indication: ANAESTHESIA
     Dosage: INHALATION
     Route: 055
     Dates: start: 20030220, end: 20030220
  2. VECURONIUM BROMIDE [Concomitant]
  3. ATROPINE SULFATE [Concomitant]
  4. MIDAZOLAM [Concomitant]
  5. FENTANYL CITRATE [Concomitant]
  6. HEPARIN [Concomitant]
  7. PROTAMINE SULFATE [Concomitant]
  8. CEFAZOLIN [Concomitant]
  9. ALPROSTADIL [Concomitant]
  10. DOPAMIINE [Concomitant]
  11. EUFUSOL [Concomitant]
  12. PHYSIO 35 [Concomitant]
  13. FAMOTIDINE [Concomitant]

REACTIONS (15)
  - BRADYCARDIA [None]
  - CARDIAC ARREST [None]
  - GENERALISED OEDEMA [None]
  - HAEMODIALYSIS [None]
  - HAEMORRHAGE [None]
  - HAEMORRHAGIC DIATHESIS [None]
  - HYPERCAPNIA [None]
  - HYPERKALAEMIA [None]
  - HYPERTHERMIA MALIGNANT [None]
  - LOW CARDIAC OUTPUT SYNDROME [None]
  - METABOLIC ACIDOSIS [None]
  - MULTI-ORGAN FAILURE [None]
  - MUSCLE RIGIDITY [None]
  - POST PROCEDURAL COMPLICATION [None]
  - VENTRICULAR FIBRILLATION [None]
